FAERS Safety Report 15463723 (Version 1)
Quarter: 2018Q4

REPORT INFORMATION
  Report Type: Spontaneous
  Country: US (occurrence: US)
  Receive Date: 20181001
  Receipt Date: 20181001
  Transmission Date: 20190204
  Serious: Yes (Other)
  Sender: FDA-Public Use
  Company Number: None

PATIENT
  Age: 87 Year
  Sex: Male
  Weight: 85.28 kg

DRUGS (12)
  1. ATORVASTATIN [Concomitant]
     Active Substance: ATORVASTATIN
  2. HYDROCHLOROTHIAZIDE. [Concomitant]
     Active Substance: HYDROCHLOROTHIAZIDE
  3. IMIQUIMOD 5% CREAM SINGLE USE PACKETS [Suspect]
     Active Substance: IMIQUIMOD
     Indication: ACTINIC KERATOSIS
     Route: 061
     Dates: start: 20180409, end: 20180603
  4. ENALAPRIL [Concomitant]
     Active Substance: ENALAPRIL
  5. ASPIRIN. [Concomitant]
     Active Substance: ASPIRIN
  6. ALBUTEROL. [Concomitant]
     Active Substance: ALBUTEROL
  7. GLUCOSIMINE CHONDROITIN [Concomitant]
  8. ALLOPURINOL. [Concomitant]
     Active Substance: ALLOPURINOL
  9. CLOPIDOGREL [Concomitant]
     Active Substance: CLOPIDOGREL BISULFATE
  10. CENTRUM SILVER [Concomitant]
     Active Substance: MINERALS\VITAMINS
  11. QVAR [Concomitant]
     Active Substance: BECLOMETHASONE DIPROPIONATE
  12. VITAMIN D [Concomitant]
     Active Substance: CHOLECALCIFEROL

REACTIONS (1)
  - Erythema [None]

NARRATIVE: CASE EVENT DATE: 20180409
